FAERS Safety Report 10164351 (Version 1)
Quarter: 2014Q2

REPORT INFORMATION
  Report Type: Spontaneous
  Country: US (occurrence: US)
  Receive Date: 20140510
  Receipt Date: 20140510
  Transmission Date: 20141212
  Serious: No
  Sender: FDA-Public Use
  Company Number: US-BRISTOL-MYERS SQUIBB COMPANY-20071189

PATIENT
  Age: 61 Year
  Sex: Female
  Weight: 73.01 kg

DRUGS (10)
  1. BYDUREON [Suspect]
     Indication: TYPE 2 DIABETES MELLITUS
     Route: 058
     Dates: start: 20130707
  2. INVOKANA [Concomitant]
  3. METFORMIN [Concomitant]
  4. GLIMEPIRIDE [Concomitant]
  5. OMEPRAZOLE [Concomitant]
  6. PRAVASTATIN SODIUM [Concomitant]
  7. ASPIRIN [Concomitant]
  8. LOSARTAN [Concomitant]
  9. VITAMIN D [Concomitant]
     Dosage: 1DF:50,000UNITS
  10. ALENDRONATE [Concomitant]

REACTIONS (6)
  - Dizziness [Unknown]
  - Pain [Unknown]
  - Paraesthesia [Unknown]
  - Dry mouth [Unknown]
  - Swollen tongue [Unknown]
  - Glossitis [Recovering/Resolving]
